FAERS Safety Report 4720704-0 (Version None)
Quarter: 2005Q3

REPORT INFORMATION
  Report Type: 
  Country: None (occurrence: None)
  Receive Date: 20050719
  Receipt Date: 20050701
  Transmission Date: 20060218
  Serious: Yes (Other)
  Sender: FDA-Public Use
  Company Number: USA0507102045

PATIENT
  Age: 40 Year
  Sex: Female

DRUGS (8)
  1. ZYPREXA [Suspect]
     Indication: BLOOD PRESSURE ABNORMAL
     Dosage: 10 MG/1 DAY
  2. LITHIUM [Concomitant]
  3. LEXAPRO [Concomitant]
  4. LEVOXYL [Concomitant]
  5. ATIVAN [Concomitant]
  6. SINGULAIR (MONTELUKAST /01362601/) [Concomitant]
  7. ADVAIR DISKUS 100/50 [Concomitant]
  8. ALBUTEROL [Concomitant]

REACTIONS (4)
  - BLOOD THYROID STIMULATING HORMONE INCREASED [None]
  - THYROXINE DECREASED [None]
  - TRI-IODOTHYRONINE DECREASED [None]
  - WEIGHT INCREASED [None]
